FAERS Safety Report 10637227 (Version 2)
Quarter: 2015Q1

REPORT INFORMATION
  Report Type: Spontaneous
  Country: DE (occurrence: DE)
  Receive Date: 20141208
  Receipt Date: 20150219
  Transmission Date: 20150720
  Serious: Yes (Hospitalization)
  Sender: FDA-Public Use
  Company Number: DE-ROCHE-1502315

PATIENT
  Sex: Female

DRUGS (18)
  1. FILGRASTIM [Suspect]
     Active Substance: FILGRASTIM
     Indication: B-CELL LYMPHOMA
     Dosage: 48 MII, IE, 5 DAYS A CYCLE
     Route: 058
     Dates: start: 20141016
  2. RITUXIMAB [Suspect]
     Active Substance: RITUXIMAB
     Indication: B-CELL LYMPHOMA
     Route: 042
     Dates: start: 20140815
  3. CYCLOPHOSPHAMIDE. [Suspect]
     Active Substance: CYCLOPHOSPHAMIDE
     Indication: B-CELL LYMPHOMA
     Route: 042
     Dates: start: 20140820
  4. MESNA. [Concomitant]
     Active Substance: MESNA
     Route: 065
     Dates: start: 20140820
  5. TRIMETHOPRIM + SULFA [Concomitant]
     Route: 065
     Dates: start: 20140823
  6. ACICLOVIR [Concomitant]
     Active Substance: ACYCLOVIR
     Route: 065
     Dates: start: 20140819
  7. LEVOFLOXACIN. [Concomitant]
     Active Substance: LEVOFLOXACIN
     Route: 065
     Dates: start: 20140825
  8. ALLOPURINOL. [Concomitant]
     Active Substance: ALLOPURINOL
  9. GRANISETRON [Concomitant]
     Active Substance: GRANISETRON
     Route: 065
     Dates: start: 20140820
  10. ATORVASTATIN [Concomitant]
     Active Substance: ATORVASTATIN
  11. PEGFILGRASTIM [Suspect]
     Active Substance: PEGFILGRASTIM
     Indication: B-CELL LYMPHOMA
     Route: 058
     Dates: start: 20140822, end: 20141003
  12. COLECALCIFEROL [Concomitant]
     Active Substance: CHOLECALCIFEROL
  13. DOXORUBICINE [Suspect]
     Active Substance: DOXORUBICIN
     Indication: B-CELL LYMPHOMA
     Route: 042
     Dates: start: 20140820
  14. PREDNISONE. [Suspect]
     Active Substance: PREDNISONE
     Indication: B-CELL LYMPHOMA
     Dosage: 6 DAYS A CYCLE
     Route: 048
     Dates: start: 20140808
  15. ACETYLSALICYLIC ACID [Concomitant]
     Active Substance: ASPIRIN
  16. RAMIPRIL. [Concomitant]
     Active Substance: RAMIPRIL
  17. BISOPROLOL [Concomitant]
     Active Substance: BISOPROLOL
  18. VINCRISTINE [Suspect]
     Active Substance: VINCRISTINE
     Indication: B-CELL LYMPHOMA
     Route: 042
     Dates: start: 20140820

REACTIONS (5)
  - Vocal cord paralysis [Not Recovered/Not Resolved]
  - General physical health deterioration [Recovered/Resolved]
  - Vertigo [Recovered/Resolved]
  - Vagus nerve disorder [Recovered/Resolved]
  - Sinus tachycardia [Recovered/Resolved]

NARRATIVE: CASE EVENT DATE: 20140916
